FAERS Safety Report 21175069 (Version 1)
Quarter: 2022Q3

REPORT INFORMATION
  Report Type: Spontaneous
  Country: CA (occurrence: CA)
  Receive Date: 20220805
  Receipt Date: 20220805
  Transmission Date: 20221027
  Serious: Yes (Other)
  Sender: FDA-Public Use
  Company Number: CA-SUN PHARMACEUTICAL INDUSTRIES LTD-2022R1-347219

PATIENT

DRUGS (7)
  1. CEFTAZIDIME [Suspect]
     Active Substance: CEFTAZIDIME
     Indication: Product used for unknown indication
     Route: 064
  2. CEFTRIAXONE [Suspect]
     Active Substance: CEFTRIAXONE
     Indication: Product used for unknown indication
     Route: 064
  3. DOLUTEGRAVIR [Suspect]
     Active Substance: DOLUTEGRAVIR
     Indication: Product used for unknown indication
     Route: 064
  4. EMTRICITABINE\TENOFOVIR [Suspect]
     Active Substance: EMTRICITABINE\TENOFOVIR
     Indication: Product used for unknown indication
     Route: 064
  5. METHADONE [Suspect]
     Active Substance: METHADONE HYDROCHLORIDE
     Indication: Product used for unknown indication
     Route: 064
  6. MOXIFLOXACIN [Suspect]
     Active Substance: MOXIFLOXACIN
     Indication: Product used for unknown indication
     Route: 064
  7. VANCOMYCIN HYDROCHLORIDE [Suspect]
     Active Substance: VANCOMYCIN HYDROCHLORIDE
     Indication: Product used for unknown indication
     Route: 064

REACTIONS (2)
  - Foetal exposure during pregnancy [Unknown]
  - Foetal growth restriction [Unknown]
